FAERS Safety Report 9111672 (Version 1)
Quarter: 2013Q1

REPORT INFORMATION
  Report Type: Spontaneous
  Country: US (occurrence: US)
  Receive Date: 20130219
  Receipt Date: 20130219
  Transmission Date: 20140127
  Serious: No
  Sender: FDA-Public Use
  Company Number: US-BRISTOL-MYERS SQUIBB COMPANY-17109836

PATIENT
  Age: 80 Year
  Sex: Female

DRUGS (5)
  1. ABATACEPT SUBQ INJECTION 125MG/ML [Suspect]
     Dosage: LAST INJ: 31OCT12
     Route: 058
  2. DILTIAZEM HCL [Concomitant]
  3. METOPROLOL [Concomitant]
  4. FOLIC ACID [Concomitant]
  5. PREDNISONE [Concomitant]

REACTIONS (2)
  - Burning sensation [Unknown]
  - Alopecia [Unknown]
